FAERS Safety Report 7232469-1 (Version None)
Quarter: 2011Q1

REPORT INFORMATION
  Report Type: 
  Country: None (occurrence: None)
  Receive Date: 20110107
  Receipt Date: 20101225
  Transmission Date: 20110831
  Serious: Yes (Hospitalization)
  Sender: FDA-Public Use
  Company Number: 012513

PATIENT
  Age: 59 Year
  Sex: Male
  Weight: 70 kg

DRUGS (13)
  1. LORAZEPAM [Concomitant]
  2. ASPIRIN [Concomitant]
  3. PIRACETAM (PIRACETAM) [Concomitant]
  4. IRBESARTAN [Concomitant]
  5. PLETAL [Suspect]
     Indication: INTERMITTENT CLAUDICATION
     Dosage: 100 MG, BID, ORAL
     Route: 048
     Dates: start: 20101124, end: 20101129
  6. GLIMEPIRIDE [Concomitant]
  7. TRAZODONE (TRAZODONE) [Concomitant]
  8. METFORMIN (METFORMIN) [Concomitant]
  9. AI((OH)3 (AI(OH)3) [Concomitant]
  10. MAGNESIUM CARBONATE (MAGNESIUM CARBONATE) [Concomitant]
  11. BACLOFEN [Concomitant]
  12. BISACODYL (BISACODYL) [Concomitant]
  13. OXETHAZINE (OXETACAINE) [Concomitant]

REACTIONS (5)
  - HEADACHE [None]
  - HUMERUS FRACTURE [None]
  - BONE GRAFT [None]
  - FALL [None]
  - DIZZINESS [None]
